FAERS Safety Report 8323276-7 (Version None)
Quarter: 2012Q2

REPORT INFORMATION
  Report Type: 
  Country: None (occurrence: None)
  Receive Date: 20120430
  Receipt Date: 20120423
  Transmission Date: 20120825
  Serious: Yes (Life-Threatening, Hospitalization, Other)
  Sender: FDA-Public Use
  Company Number: PHHY2012AU015055

PATIENT
  Age: 36 Year
  Sex: Female

DRUGS (7)
  1. ACETAMINOPHEN [Concomitant]
  2. CLOZAPINE [Suspect]
     Dosage: 450 MG, QD (150 MG MANE AND 300 MG NOCTE)
     Route: 048
     Dates: start: 20100624, end: 20100709
  3. LITHIUM CARBONATE [Concomitant]
     Indication: SCHIZOPHRENIA
     Route: 048
     Dates: start: 20100505, end: 20100712
  4. QUETIAPINE [Concomitant]
     Indication: SCHIZOPHRENIA
     Dosage: 600 MG, BID
     Route: 048
     Dates: end: 20100712
  5. CLOZAPINE [Suspect]
     Indication: SCHIZOPHRENIA
     Dosage: 12.5 MG, DAILY
     Route: 048
  6. VALPROATE SODIUM [Concomitant]
     Indication: SCHIZOPHRENIA
     Dosage: 1000 MG, BID
     Route: 048
     Dates: start: 20100416, end: 20100712
  7. SALICYLATES [Concomitant]

REACTIONS (23)
  - MULTI-ORGAN FAILURE [None]
  - METABOLIC ACIDOSIS [None]
  - URINARY TRACT INFECTION [None]
  - PULMONARY OEDEMA [None]
  - RENAL IMPAIRMENT [None]
  - HEADACHE [None]
  - ABDOMINAL PAIN [None]
  - SYSTEMIC INFLAMMATORY RESPONSE SYNDROME [None]
  - PROCALCITONIN INCREASED [None]
  - PROTEINURIA [None]
  - HEPATOMEGALY [None]
  - RENAL FAILURE ACUTE [None]
  - TOXICITY TO VARIOUS AGENTS [None]
  - MALAISE [None]
  - LEFT VENTRICULAR DYSFUNCTION [None]
  - BLOOD CREATININE INCREASED [None]
  - EFFUSION [None]
  - FLUID OVERLOAD [None]
  - ILEUS [None]
  - INTESTINAL DILATATION [None]
  - PYREXIA [None]
  - HYPOTENSION [None]
  - C-REACTIVE PROTEIN INCREASED [None]
